FAERS Safety Report 25082029 (Version 1)
Quarter: 2025Q1

REPORT INFORMATION
  Report Type: Spontaneous
  Country: US (occurrence: US)
  Receive Date: 20250317
  Receipt Date: 20250317
  Transmission Date: 20250408
  Serious: Yes (Hospitalization)
  Sender: RIGEL PHARMACEUTICALS
  Company Number: US-RIGEL Pharmaceuticals INC- 20250100092

PATIENT
  Age: 72 Year
  Sex: Male

DRUGS (2)
  1. TAVALISSE [Suspect]
     Active Substance: FOSTAMATINIB
     Indication: Thrombocytopenia
     Dosage: 100 MG, BID
     Route: 048
     Dates: start: 20241225
  2. TAVALISSE [Suspect]
     Active Substance: FOSTAMATINIB
     Indication: Aplastic anaemia
     Dosage: 100 MG, BID
     Route: 048

REACTIONS (8)
  - Hospitalisation [Recovered/Resolved]
  - Platelet count decreased [Not Recovered/Not Resolved]
  - Renal function test abnormal [Unknown]
  - Glycosylated haemoglobin increased [Unknown]
  - Dyspnoea exertional [Unknown]
  - Infusion [Unknown]
  - Off label use [Unknown]
  - Blood pressure increased [Unknown]

NARRATIVE: CASE EVENT DATE: 20241201
